FAERS Safety Report 5272855-2 (Version None)
Quarter: 2007Q1

REPORT INFORMATION
  Report Type: 
  Country: None (occurrence: None)
  Receive Date: 20070322
  Receipt Date: 20070316
  Transmission Date: 20070707
  Serious: Yes (Hospitalization)
  Sender: FDA-Public Use
  Company Number: 2007SE01523

PATIENT
  Age: 59 Year
  Sex: Female
  Weight: 81 kg

DRUGS (5)
  1. COKENZEN [Suspect]
     Indication: HYPERTENSION
     Route: 048
     Dates: start: 20070125, end: 20070201
  2. LEVOTHYROXINE SODIUM [Concomitant]
     Indication: BASEDOW'S DISEASE
     Route: 048
  3. KERLONE [Concomitant]
     Indication: HYPERTENSION
     Route: 048
     Dates: start: 20070125
  4. STILNOX [Concomitant]
     Indication: INSOMNIA
     Route: 048
  5. ZOMIG [Concomitant]
     Indication: MIGRAINE
     Route: 048

REACTIONS (6)
  - ASPARTATE AMINOTRANSFERASE INCREASED [None]
  - EOSINOPHILIA [None]
  - PYREXIA [None]
  - RASH [None]
  - RASH MACULO-PAPULAR [None]
  - TOXIC SKIN ERUPTION [None]
